FAERS Safety Report 19956246 (Version 1)
Quarter: 2021Q4

REPORT INFORMATION
  Report Type: Spontaneous
  Country: SE (occurrence: SE)
  Receive Date: 20211014
  Receipt Date: 20211014
  Transmission Date: 20220303
  Serious: Yes (Other)
  Sender: FDA-Public Use
  Company Number: None

PATIENT
  Age: 38 Year
  Sex: Female
  Weight: 75 kg

DRUGS (1)
  1. SERTRALINE [Suspect]
     Active Substance: SERTRALINE HYDROCHLORIDE
     Indication: Cortisol decreased
     Dosage: 25 MILLIGRAM, QD 1/2 TABLET DAILY
     Dates: start: 20170718

REACTIONS (5)
  - Sleep apnoea syndrome [Recovered/Resolved]
  - Dizziness [Recovered/Resolved]
  - Withdrawal syndrome [Recovered/Resolved]
  - Restless legs syndrome [Recovered/Resolved]
  - Electric shock sensation [Recovered/Resolved]
